FAERS Safety Report 6923471-5 (Version None)
Quarter: 2010Q3

REPORT INFORMATION
  Report Type: 
  Country: None (occurrence: None)
  Receive Date: 20100813
  Receipt Date: 20100803
  Transmission Date: 20110219
  Serious: Yes (Other)
  Sender: FDA-Public Use
  Company Number: US-PFIZER INC-2010092509

PATIENT
  Sex: Male
  Weight: 63.492 kg

DRUGS (3)
  1. LYRICA [Suspect]
     Indication: FIBROMYALGIA
     Dosage: 150 MG, 3X/DAY
     Route: 048
     Dates: start: 20100301, end: 20100723
  2. LYRICA [Suspect]
     Indication: PAIN
  3. OMEPRAZOLE [Suspect]
     Indication: GASTROOESOPHAGEAL REFLUX DISEASE
     Dosage: 20 MG, UNK
     Dates: end: 20100701

REACTIONS (28)
  - ABDOMINAL PAIN UPPER [None]
  - BACK DISORDER [None]
  - BURNING SENSATION [None]
  - DIZZINESS [None]
  - DRUG INEFFECTIVE [None]
  - ERYTHEMA [None]
  - EXOPHTHALMOS [None]
  - FEELING JITTERY [None]
  - HYPERAESTHESIA [None]
  - HYPERHIDROSIS [None]
  - HYPERSENSITIVITY [None]
  - INJURY [None]
  - INSOMNIA [None]
  - LIVEDO RETICULARIS [None]
  - MEMORY IMPAIRMENT [None]
  - MIGRAINE [None]
  - PAIN [None]
  - PARAESTHESIA [None]
  - PHOTOSENSITIVITY REACTION [None]
  - PRURITUS [None]
  - PSORIASIS [None]
  - RASH [None]
  - RASH MACULAR [None]
  - SKELETAL INJURY [None]
  - SWOLLEN TONGUE [None]
  - TENSION [None]
  - VISION BLURRED [None]
  - VISUAL IMPAIRMENT [None]
